FAERS Safety Report 5689072-4 (Version None)
Quarter: 2008Q1

REPORT INFORMATION
  Report Type: 
  Country: None (occurrence: None)
  Receive Date: 20080331
  Receipt Date: 20080327
  Transmission Date: 20080703
  Serious: Yes (Other)
  Sender: FDA-Public Use
  Company Number: B0514484A

PATIENT
  Age: 21 Year
  Sex: Female

DRUGS (1)
  1. SEROXAT [Suspect]
     Route: 048
     Dates: start: 20050101

REACTIONS (4)
  - AGGRESSION [None]
  - ANGER [None]
  - HOMICIDE [None]
  - MENTAL DISORDER [None]
